FAERS Safety Report 12408010 (Version 1)
Quarter: 2016Q2

REPORT INFORMATION
  Report Type: Report from Study
  Country: PH (occurrence: PH)
  Receive Date: 20160526
  Receipt Date: 20160526
  Transmission Date: 20160815
  Serious: Yes (Hospitalization)
  Sender: FDA-Public Use
  Company Number: PHHY2016PH070753

PATIENT
  Age: 25 Year
  Sex: Male

DRUGS (2)
  1. MAGNESIO//MAGNESIUM OXIDE [Concomitant]
     Indication: PRODUCT USED FOR UNKNOWN INDICATION
     Route: 065
  2. ENTRESTO [Suspect]
     Active Substance: SACUBITRIL\VALSARTAN
     Indication: CARDIAC FAILURE
     Dosage: 50 MG, QD
     Route: 048
     Dates: start: 20160513

REACTIONS (6)
  - Dyspnoea [Recovering/Resolving]
  - Malaise [Recovering/Resolving]
  - Blood potassium increased [Recovering/Resolving]
  - Hypotension [Recovering/Resolving]
  - Hypokinesia [Recovering/Resolving]
  - Wrong technique in product usage process [Unknown]

NARRATIVE: CASE EVENT DATE: 20160513
